FAERS Safety Report 4448223-X (Version None)
Quarter: 2004Q3

REPORT INFORMATION
  Report Type: 
  Country: None (occurrence: None)
  Receive Date: 20040913
  Receipt Date: 20040908
  Transmission Date: 20050211
  Serious: Yes (Death)
  Sender: FDA-Public Use
  Company Number: PHFR2004GB03429

PATIENT

DRUGS (1)
  1. SIMULECT [Suspect]

REACTIONS (1)
  - HEPATIC FAILURE [None]
